FAERS Safety Report 6657659-8 (Version None)
Quarter: 2010Q1

REPORT INFORMATION
  Report Type: 
  Country: None (occurrence: None)
  Receive Date: 20100330
  Receipt Date: 20100318
  Transmission Date: 20100710
  Serious: Yes (Hospitalization)
  Sender: FDA-Public Use
  Company Number: US-SANOFI-AVENTIS-2010SA017006

PATIENT
  Sex: Male

DRUGS (2)
  1. MULTAQ [Suspect]
     Route: 065
  2. DIGOXIN [Suspect]
     Route: 065

REACTIONS (4)
  - BRADYCARDIA [None]
  - DRUG INTERACTION [None]
  - RENAL FAILURE [None]
  - THERAPEUTIC AGENT TOXICITY [None]
